FAERS Safety Report 16664462 (Version 1)
Quarter: 2019Q3

REPORT INFORMATION
  Report Type: Report from Study
  Country: US (occurrence: US)
  Receive Date: 20190802
  Receipt Date: 20190802
  Transmission Date: 20191004
  Serious: Yes (Hospitalization)
  Sender: FDA-Public Use
  Company Number: US-ELI_LILLY_AND_COMPANY-US201907005138

PATIENT
  Sex: Female

DRUGS (2)
  1. BASAGLAR [Suspect]
     Active Substance: INSULIN GLARGINE
     Indication: PRODUCT USED FOR UNKNOWN INDICATION
     Dosage: UNK UNK, UNKNOWN
     Route: 065
  2. BASAGLAR [Suspect]
     Active Substance: INSULIN GLARGINE
     Dosage: UNK UNK, UNKNOWN
     Route: 065

REACTIONS (9)
  - Vision blurred [Unknown]
  - Blood glucose decreased [Unknown]
  - Confusional state [Unknown]
  - Visual impairment [Unknown]
  - Weight increased [Unknown]
  - Fluid retention [Unknown]
  - Disturbance in attention [Unknown]
  - Headache [Unknown]
  - Dizziness [Unknown]
